FAERS Safety Report 8496070-4 (Version None)
Quarter: 2012Q3

REPORT INFORMATION
  Report Type: 
  Country: None (occurrence: None)
  Receive Date: 20120709
  Receipt Date: 20120629
  Transmission Date: 20120928
  Serious: Yes (Hospitalization)
  Sender: FDA-Public Use
  Company Number: JP-ASTRAZENECA-2012SE39841

PATIENT
  Age: 75 Year
  Sex: Female
  Weight: 35 kg

DRUGS (9)
  1. NEXIUM [Suspect]
     Indication: GASTROOESOPHAGEAL REFLUX DISEASE
     Route: 048
     Dates: start: 20111012, end: 20120612
  2. TRICHLORMETHIAZIDE [Suspect]
     Indication: HYPERTENSION
     Route: 048
     Dates: start: 20110107, end: 20120403
  3. RIKKUNSHITO [Concomitant]
     Indication: NAUSEA
     Route: 048
     Dates: start: 20120306
  4. MAGMITT [Concomitant]
     Indication: CONSTIPATION
     Route: 048
     Dates: start: 20111024, end: 20111201
  5. HALCION [Concomitant]
     Indication: INSOMNIA
     Route: 048
     Dates: start: 20120306, end: 20120417
  6. AMOBAN [Concomitant]
     Indication: INSOMNIA
     Route: 048
     Dates: start: 20120501, end: 20120515
  7. MAGMITT [Concomitant]
     Route: 048
     Dates: start: 20111201
  8. TRANDOLAPRIL [Concomitant]
     Indication: HYPERTENSION
     Route: 048
     Dates: start: 20091020, end: 20120403
  9. OLMESARTAN MEDOXOMIL [Concomitant]
     Indication: HYPERTENSION
     Route: 048
     Dates: start: 20120403

REACTIONS (3)
  - DECREASED APPETITE [None]
  - LOSS OF CONSCIOUSNESS [None]
  - HYPONATRAEMIA [None]
